FAERS Safety Report 5635086-X (Version None)
Quarter: 2008Q1

REPORT INFORMATION
  Report Type: 
  Country: None (occurrence: None)
  Receive Date: 20080131
  Receipt Date: 20071112
  Transmission Date: 20080703
  Serious: No
  Sender: FDA-Public Use
  Company Number: 163-21880-07110692

PATIENT
  Age: 80 Year
  Sex: Female

DRUGS (1)
  1. REVLIMID [Suspect]
     Indication: MYELODYSPLASTIC SYNDROME
     Dosage: 10 MG, DAILY X 21 DAYS WITH 7 DAYS OFF, ORAL
     Route: 048
     Dates: start: 20071105

REACTIONS (3)
  - EPISTAXIS [None]
  - PRURITUS [None]
  - SKIN BURNING SENSATION [None]
